FAERS Safety Report 8758134 (Version 1)
Quarter: 2012Q4

REPORT INFORMATION
  Report Type: 
  Country: US (occurrence: US)
  Receive Date: 20120829
  Receipt Date: 20120829
  Transmission Date: 20130627
  Serious: No
  Sender: FDA-Public Use
  Company Number: US-TEVA-355615USA

PATIENT
  Sex: Male
  Weight: 81.72 kg

DRUGS (16)
  1. NUVIGIL [Suspect]
     Indication: SLEEP APNOEA SYNDROME
     Dosage: 150 Milligram Daily;
     Route: 048
     Dates: start: 201205, end: 201205
  2. COUMADIN [Concomitant]
  3. IRON [Concomitant]
     Indication: MEDICAL DIET
     Route: 048
  4. LASIX [Concomitant]
     Route: 048
  5. K-DUR [Concomitant]
     Route: 048
  6. IMDUR [Concomitant]
     Route: 048
  7. ZOCOR [Concomitant]
     Indication: BLOOD CHOLESTEROL
     Route: 048
  8. PROSCAR [Concomitant]
     Route: 048
  9. LOPRESSOR [Concomitant]
     Dosage: 1/2 tablet daily
     Route: 048
  10. TYLENOL WITH CODEINE [Concomitant]
     Indication: SLEEP DISORDER
     Route: 048
  11. ADVAIR [Concomitant]
     Indication: DYSPNOEA
     Dosage: 250/50
     Route: 048
  12. PROAIR HFA [Concomitant]
     Route: 048
  13. SERTRALINE [Concomitant]
     Indication: AFFECTIVE DISORDER
     Route: 048
  14. POTASSIUM [Concomitant]
     Indication: MEDICAL DIET
     Route: 048
  15. PROTONIX [Concomitant]
     Route: 048
  16. ASPIRIN [Concomitant]
     Route: 048

REACTIONS (1)
  - Urticaria [Recovered/Resolved]
